FAERS Safety Report 13485389 (Version 1)
Quarter: 2017Q2

REPORT INFORMATION
  Report Type: Spontaneous
  Country: US (occurrence: US)
  Receive Date: 20170426
  Receipt Date: 20170426
  Transmission Date: 20170830
  Serious: No
  Sender: FDA-Public Use
  Company Number: None

PATIENT
  Age: 76 Year
  Sex: Male
  Weight: 86.26 kg

DRUGS (13)
  1. PRILOSEC [Concomitant]
     Active Substance: OMEPRAZOLE MAGNESIUM
  2. PROBIOTIC [Concomitant]
     Active Substance: PROBIOTICS NOS
  3. COZAAR [Concomitant]
     Active Substance: LOSARTAN POTASSIUM
  4. COQ10 [Concomitant]
     Active Substance: UBIDECARENONE
  5. NORVASC [Concomitant]
     Active Substance: AMLODIPINE BESYLATE
  6. COREG [Concomitant]
     Active Substance: CARVEDILOL
  7. ASPRIN [Concomitant]
     Active Substance: ASPIRIN
  8. BRILINTA [Concomitant]
     Active Substance: TICAGRELOR
  9. MAGNISIUM [Concomitant]
  10. SYNTHROID [Concomitant]
     Active Substance: LEVOTHYROXINE SODIUM
  11. VITAMIN D3 [Concomitant]
     Active Substance: CHOLECALCIFEROL
  12. LYRICA [Suspect]
     Active Substance: PREGABALIN
     Indication: BACK PAIN
     Dosage: AT BEDTIME
     Route: 048
     Dates: start: 20150203, end: 20150303
  13. MELATONIN [Concomitant]
     Active Substance: MELATONIN

REACTIONS (13)
  - Back pain [None]
  - Visual impairment [None]
  - Cough [None]
  - Movement disorder [None]
  - Agitation [None]
  - Dizziness [None]
  - Coronary arterial stent insertion [None]
  - Diarrhoea [None]
  - Rash [None]
  - Pain in extremity [None]
  - Hallucination [None]
  - Eye pain [None]
  - Drug ineffective [None]

NARRATIVE: CASE EVENT DATE: 20150303
